FAERS Safety Report 7216114-7 (Version None)
Quarter: 2011Q1

REPORT INFORMATION
  Report Type: 
  Country: None (occurrence: None)
  Receive Date: 20110105
  Receipt Date: 20110105
  Transmission Date: 20110831
  Serious: Yes (Other)
  Sender: FDA-Public Use
  Company Number: None

PATIENT
  Age: 13 Year
  Sex: Male
  Weight: 39.4629 kg

DRUGS (2)
  1. DALLERGY PE SYR 240 ML CRC [Suspect]
     Indication: COUGH
     Dosage: 2 TEASPOONSFUL EVERY6HRS ASNEEDED BUCCAL
     Route: 002
     Dates: start: 20101227, end: 20110102
  2. AMOXICILLIN [Suspect]
     Indication: SINUSITIS
     Dosage: 2 TEASPOONSFUL TWICE DAILY 10DAYS BUCCAL
     Route: 002
     Dates: start: 20101227, end: 20110102

REACTIONS (1)
  - HYPERSENSITIVITY [None]
